FAERS Safety Report 12649226 (Version 2)
Quarter: 2017Q1

REPORT INFORMATION
  Report Type: Spontaneous
  Country: US (occurrence: US)
  Receive Date: 20160812
  Receipt Date: 20170112
  Transmission Date: 20170428
  Serious: No
  Sender: FDA-Public Use
  Company Number: US-DEPOMED, INC.-US-2016DEP008292

PATIENT

DRUGS (7)
  1. ZIPSOR [Suspect]
     Active Substance: DICLOFENAC POTASSIUM
     Indication: NEURALGIA
  2. ZIPSOR [Suspect]
     Active Substance: DICLOFENAC POTASSIUM
     Indication: FLUID RETENTION
  3. ZIPSOR [Suspect]
     Active Substance: DICLOFENAC POTASSIUM
     Indication: HYPERTENSION
  4. GRALISE [Suspect]
     Active Substance: GABAPENTIN
     Indication: NEURALGIA
     Dosage: 1200 MG, QD
     Route: 048
  5. GRALISE [Suspect]
     Active Substance: GABAPENTIN
     Indication: ARACHNOIDITIS
     Dosage: TITRATED UP TO 1800 MG
     Route: 048
     Dates: start: 2012
  6. ZIPSOR [Suspect]
     Active Substance: DICLOFENAC POTASSIUM
     Indication: ARACHNOIDITIS
     Dosage: 25 MG, PRN
     Route: 048
  7. ZIPSOR [Suspect]
     Active Substance: DICLOFENAC POTASSIUM
     Indication: OEDEMA PERIPHERAL

REACTIONS (2)
  - Product use issue [Not Recovered/Not Resolved]
  - Drug ineffective [Unknown]
